FAERS Safety Report 12372969 (Version 1)
Quarter: 2016Q2

REPORT INFORMATION
  Report Type: Spontaneous
  Country: KW (occurrence: KW)
  Receive Date: 20160516
  Receipt Date: 20160516
  Transmission Date: 20160815
  Serious: Yes (Other)
  Sender: FDA-Public Use
  Company Number: KW-MYLANLABS-2016M1020075

PATIENT

DRUGS (4)
  1. PALIPERIDONE. [Suspect]
     Active Substance: PALIPERIDONE
     Indication: SCHIZOPHRENIA
     Dosage: INITIAL DOSE NOT STATED; UP TITRATED UPTO 9 MG/DAY
     Route: 065
  2. RIVOTRIL [Concomitant]
     Active Substance: CLONAZEPAM
     Indication: SCHIZOPHRENIA
     Dosage: 1 MG AT NIGHT
     Route: 065
  3. BROMOCRIPTINE [Suspect]
     Active Substance: BROMOCRIPTINE
     Indication: HYPERPROLACTINAEMIA
     Dosage: 2.5 MG AT NIGHT
     Route: 065
  4. BROMOCRIPTINE [Suspect]
     Active Substance: BROMOCRIPTINE
     Dosage: 2.5 MG TWICE A DAY
     Route: 065

REACTIONS (6)
  - Tremor [Recovering/Resolving]
  - Hyperprolactinaemia [Recovering/Resolving]
  - Gynaecomastia [Unknown]
  - Weight increased [Unknown]
  - Blood glucose abnormal [Recovered/Resolved]
  - Nausea [Recovered/Resolved]
